FAERS Safety Report 11456068 (Version 4)
Quarter: 2015Q4

REPORT INFORMATION
  Report Type: Report from Study
  Country: US (occurrence: US)
  Receive Date: 20150903
  Receipt Date: 20151211
  Transmission Date: 20160304
  Serious: Yes (Other)
  Sender: FDA-Public Use
  Company Number: US-AMGEN-USASP2015087915

PATIENT
  Age: 64 Year
  Sex: Male

DRUGS (2)
  1. PLAVIX [Concomitant]
     Active Substance: CLOPIDOGREL BISULFATE
     Dosage: UNK
  2. ENBREL [Suspect]
     Active Substance: ETANERCEPT
     Indication: PSORIASIS
     Dosage: UNKNOWN, QWK
     Route: 065
     Dates: start: 20040615

REACTIONS (4)
  - Tooth disorder [Unknown]
  - Surgery [Unknown]
  - Basal cell carcinoma [Unknown]
  - Tendon sheath incision [Unknown]
